FAERS Safety Report 11789447 (Version 4)
Quarter: 2016Q1

REPORT INFORMATION
  Report Type: Spontaneous
  Country: JP (occurrence: JP)
  Receive Date: 20151201
  Receipt Date: 20160314
  Transmission Date: 20160525
  Serious: Yes (Hospitalization)
  Sender: FDA-Public Use
  Company Number: JP-ASTELLAS-2015JP023611

PATIENT
  Age: 57 Year
  Sex: Female
  Weight: 34 kg

DRUGS (5)
  1. CIPROXAN                           /00697202/ [Concomitant]
     Active Substance: CIPROFLOXACIN
     Indication: FUNGAL INFECTION
     Route: 042
     Dates: start: 20140805, end: 20140806
  2. KCL [Concomitant]
     Active Substance: POTASSIUM CHLORIDE
     Indication: ELECTROLYTE SUBSTITUTION THERAPY
     Dosage: 5CC, TWICE DAILY
     Route: 042
     Dates: start: 20140805, end: 20140808
  3. ISOTONIC SODIUM CHLORIDE SOLUTION [Concomitant]
     Active Substance: SODIUM CHLORIDE
     Indication: ELECTROLYTE SUBSTITUTION THERAPY
     Route: 042
     Dates: start: 20140805, end: 20140808
  4. FUNGUARD [Suspect]
     Active Substance: MICAFUNGIN SODIUM
     Indication: FUNGAL INFECTION
     Dosage: 50 MG, ONCE DAILY, ADMINISTRATION ROUTE: CV PORT
     Route: 041
     Dates: start: 20140807, end: 20140808
  5. NEOPAREN [Concomitant]
     Active Substance: AMINO ACIDS\DEXTROSE\ELECTROLYTES NOS
     Indication: NUTRITIONAL SUPPLEMENTATION
     Route: 042
     Dates: start: 20140804, end: 20140811

REACTIONS (1)
  - Drug-induced liver injury [Recovered/Resolved]

NARRATIVE: CASE EVENT DATE: 20140809
